FAERS Safety Report 26043181 (Version 2)
Quarter: 2025Q4

REPORT INFORMATION
  Report Type: Spontaneous
  Country: JP (occurrence: JP)
  Receive Date: 20251113
  Receipt Date: 20251216
  Transmission Date: 20260118
  Serious: Yes (Death, Other)
  Sender: BAUSCH AND LOMB
  Company Number: JP-BAUSCH-BH-2025-019441

PATIENT
  Age: 84 Year
  Sex: Male

DRUGS (1)
  1. BRODALUMAB [Suspect]
     Active Substance: BRODALUMAB
     Indication: Psoriasis
     Route: 058

REACTIONS (2)
  - Death [Fatal]
  - Psoriasis [Unknown]
